FAERS Safety Report 4448358-1 (Version None)
Quarter: 2004Q3

REPORT INFORMATION
  Report Type: 
  Country: None (occurrence: None)
  Receive Date: 20040909
  Receipt Date: 20040909
  Transmission Date: 20050211
  Serious: Yes (Life-Threatening, Hospitalization)
  Sender: FDA-Public Use
  Company Number: None

PATIENT
  Age: 38 Year
  Sex: Female
  Weight: 52.1637 kg

DRUGS (4)
  1. CLOMID [Suspect]
     Indication: INFERTILITY
     Dosage: 50 MG QAM ORAL
     Route: 048
     Dates: start: 20040707, end: 20040711
  2. PROGESTERONE [Suspect]
     Indication: INFERTILITY
     Dosage: 50MG QHS VAGINAL
     Route: 067
     Dates: start: 20040717, end: 20040730
  3. ACIPHEX [Concomitant]
  4. OVIDREL [Concomitant]

REACTIONS (1)
  - SUBARACHNOID HAEMORRHAGE [None]
